FAERS Safety Report 5383890-8 (Version None)
Quarter: 2007Q3

REPORT INFORMATION
  Report Type: 
  Country: None (occurrence: None)
  Receive Date: 20070706
  Receipt Date: 20070626
  Transmission Date: 20080115
  Serious: Yes (Other)
  Sender: FDA-Public Use
  Company Number: 430054K07USA

PATIENT
  Age: 56 Year
  Sex: Female

DRUGS (2)
  1. NOVANTRONE [Suspect]
     Indication: MULTIPLE SCLEROSIS
     Dosage: INTRAVENOUS (NOT OTHERWISE SPECIFIED)
     Route: 042
  2. REBIF [Concomitant]

REACTIONS (1)
  - CORONARY ARTERY OCCLUSION [None]
